FAERS Safety Report 8670204 (Version 2)
Quarter: 2013Q2

REPORT INFORMATION
  Report Type: Spontaneous
  Country: US (occurrence: US)
  Receive Date: 20120718
  Receipt Date: 20130412
  Transmission Date: 20140414
  Serious: No
  Sender: FDA-Public Use
  Company Number: US-009507513-1207USA004494

PATIENT
  Age: 54 Year
  Sex: Male
  Weight: 79.82 kg

DRUGS (3)
  1. VICTRELIS [Suspect]
     Indication: HEPATITIS C
     Dosage: 800 MG, TID
     Route: 048
     Dates: start: 20120707
  2. PEGINTRON [Suspect]
     Dosage: UNK, UNKNOWN
  3. RIBASPHERE [Suspect]
     Dosage: UNK, UNKNOWN

REACTIONS (6)
  - Suicidal ideation [Unknown]
  - Chest pain [Unknown]
  - Chest discomfort [Unknown]
  - Headache [Recovered/Resolved]
  - Fatigue [Recovered/Resolved]
  - Depression [Unknown]
